FAERS Safety Report 4952724-5 (Version None)
Quarter: 2006Q1

REPORT INFORMATION
  Report Type: 
  Country: None (occurrence: None)
  Receive Date: 20060324
  Receipt Date: 20060315
  Transmission Date: 20060701
  Serious: Yes (Hospitalization)
  Sender: FDA-Public Use
  Company Number: 2006UW04448

PATIENT
  Age: 63 Year
  Sex: Male

DRUGS (4)
  1. CRESTOR [Suspect]
     Route: 048
     Dates: start: 20051213
  2. LIPITOR [Concomitant]
  3. FLOMAX [Concomitant]
  4. AVODART [Concomitant]
     Dates: start: 20051201

REACTIONS (2)
  - HAEMATURIA [None]
  - IDIOPATHIC THROMBOCYTOPENIC PURPURA [None]
